FAERS Safety Report 18535122 (Version 1)
Quarter: 2020Q4

REPORT INFORMATION
  Report Type: Report from Study
  Country: AU (occurrence: AU)
  Receive Date: 20201123
  Receipt Date: 20201123
  Transmission Date: 20210114
  Serious: Yes (Other)
  Sender: FDA-Public Use
  Company Number: AU-BRISTOL-MYERS SQUIBB COMPANY-BMS-2020-097356

PATIENT
  Age: 55 Year
  Sex: Female

DRUGS (6)
  1. IPILIMUMAB [Suspect]
     Active Substance: IPILIMUMAB
     Indication: METASTATIC MALIGNANT MELANOMA
     Dosage: 215 MILLIGRAM, Q3WK
     Route: 042
     Dates: start: 20200904, end: 20201026
  2. NOVORAPID [Concomitant]
     Active Substance: INSULIN ASPART
     Indication: PRODUCT USED FOR UNKNOWN INDICATION
     Dosage: 10-12 IU
     Route: 065
     Dates: start: 20200927
  3. NIVOLUMAB [Suspect]
     Active Substance: NIVOLUMAB
     Indication: METASTATIC MALIGNANT MELANOMA
     Dosage: 72 MILLIGRAM, Q3WK
     Route: 042
     Dates: start: 20200904, end: 20201026
  4. LANTUS [Concomitant]
     Active Substance: INSULIN GLARGINE
     Indication: PRODUCT USED FOR UNKNOWN INDICATION
     Dosage: 22 INTERNATIONAL UNIT
     Route: 065
     Dates: start: 20200926
  5. ESCITALOPRAM [Concomitant]
     Active Substance: ESCITALOPRAM OXALATE
     Indication: PRODUCT USED FOR UNKNOWN INDICATION
     Dosage: 10 MILLIGRAM
     Route: 065
     Dates: start: 20180101
  6. BETAMETHASONE. [Concomitant]
     Active Substance: BETAMETHASONE
     Indication: PRODUCT USED FOR UNKNOWN INDICATION
     Dosage: 0.0005 MG
     Route: 061
     Dates: start: 20200914

REACTIONS (2)
  - Uveitis [Not Recovered/Not Resolved]
  - Scleral disorder [Not Recovered/Not Resolved]

NARRATIVE: CASE EVENT DATE: 20201109
